FAERS Safety Report 10408863 (Version 4)
Quarter: 2015Q3

REPORT INFORMATION
  Report Type: Spontaneous
  Country: US (occurrence: US)
  Receive Date: 20140826
  Receipt Date: 20150923
  Transmission Date: 20151125
  Serious: Yes (Hospitalization, Other)
  Sender: FDA-Public Use
  Company Number: US-AMGEN-USASP2014064336

PATIENT
  Age: 47 Year
  Sex: Female

DRUGS (5)
  1. METHOTREXATE [Concomitant]
     Active Substance: METHOTREXATE
     Dosage: 7 TABLETS WEEKLY
     Dates: start: 2008
  2. ENBREL [Suspect]
     Active Substance: ETANERCEPT
     Indication: RHEUMATOID ARTHRITIS
     Dosage: 50 MG, QWK
     Route: 065
     Dates: start: 20080601
  3. LEVAQUIN [Suspect]
     Active Substance: LEVOFLOXACIN
     Indication: PRODUCT USED FOR UNKNOWN INDICATION
     Dosage: UNK
     Route: 065
  4. BUSPAR [Suspect]
     Active Substance: BUSPIRONE HYDROCHLORIDE
     Indication: PRODUCT USED FOR UNKNOWN INDICATION
     Dosage: UNK
     Route: 065
  5. EPIPEN [Concomitant]
     Active Substance: EPINEPHRINE

REACTIONS (12)
  - Pharyngeal oedema [Unknown]
  - Nightmare [Unknown]
  - Lung disorder [Recovered/Resolved]
  - Incorrect product storage [Unknown]
  - Shrinking lung syndrome [Not Recovered/Not Resolved]
  - Pneumonia [Unknown]
  - Arthralgia [Not Recovered/Not Resolved]
  - Dyspnoea [Unknown]
  - Swollen tongue [Unknown]
  - Fibromyalgia [Not Recovered/Not Resolved]
  - Lung transplant [Unknown]
  - Rheumatoid arthritis [Not Recovered/Not Resolved]

NARRATIVE: CASE EVENT DATE: 200806
